FAERS Safety Report 10523219 (Version 2)
Quarter: 2014Q4

REPORT INFORMATION
  Report Type: Spontaneous
  Country: US (occurrence: US)
  Receive Date: 20141016
  Receipt Date: 20141104
  Transmission Date: 20150528
  Serious: Yes (Hospitalization, Other)
  Sender: FDA-Public Use
  Company Number: US-PFIZER INC-2014283064

PATIENT
  Age: 85 Year
  Sex: Female
  Weight: 71.7 kg

DRUGS (1)
  1. AROMASIN [Suspect]
     Active Substance: EXEMESTANE
     Indication: BREAST CANCER FEMALE
     Dosage: UNK, ONCE A DAY
     Dates: start: 2009

REACTIONS (5)
  - Myocardial infarction [Recovered/Resolved]
  - Renal disorder [Not Recovered/Not Resolved]
  - Cataract [Not Recovered/Not Resolved]
  - Abasia [Not Recovered/Not Resolved]
  - Blindness [Not Recovered/Not Resolved]

NARRATIVE: CASE EVENT DATE: 20120718
